FAERS Safety Report 6788846-6 (Version None)
Quarter: 2010Q2

REPORT INFORMATION
  Report Type: 
  Country: None (occurrence: None)
  Receive Date: 20100623
  Receipt Date: 20080520
  Transmission Date: 20101027
  Serious: No
  Sender: FDA-Public Use
  Company Number: US-PFIZER INC-2008043886

PATIENT
  Sex: Female
  Weight: 117.72 kg

DRUGS (2)
  1. PROVERA [Suspect]
     Indication: MENORRHAGIA
     Dates: start: 20080519
  2. PLAVIX [Concomitant]

REACTIONS (1)
  - NERVOUSNESS [None]
